FAERS Safety Report 25938260 (Version 1)
Quarter: 2025Q4

REPORT INFORMATION
  Report Type: Report from Study
  Country: EU (occurrence: EU)
  Receive Date: 20251018
  Receipt Date: 20251018
  Transmission Date: 20260118
  Serious: Yes (Hospitalization, Other)
  Sender: SANOFI AVENTIS
  Company Number: EU-SA-2025SA309894

PATIENT
  Age: 67 Year
  Sex: Female

DRUGS (16)
  1. DUPILUMAB [Suspect]
     Active Substance: DUPILUMAB
     Indication: Asthma
     Dosage: 600 MG, 1X
     Route: 058
     Dates: start: 20250801, end: 20250801
  2. DUPILUMAB [Suspect]
     Active Substance: DUPILUMAB
     Dosage: 300 MG, QOW
     Route: 058
     Dates: start: 202508
  3. ASPIRIN [Suspect]
     Active Substance: ASPIRIN
  4. CARDURA [Concomitant]
     Active Substance: DOXAZOSIN MESYLATE
     Indication: Blood pressure management
  5. LANSOPRAZOLE [Concomitant]
     Active Substance: LANSOPRAZOLE
  6. LYRICA [Concomitant]
     Active Substance: PREGABALIN
  7. QUETIAPINE [Concomitant]
     Active Substance: QUETIAPINE
  8. ZOPICLONE [Concomitant]
     Active Substance: ZOPICLONE
  9. SINGULAIR [Concomitant]
     Active Substance: MONTELUKAST SODIUM
  10. SPIRIVA [Concomitant]
     Active Substance: TIOTROPIUM BROMIDE MONOHYDRATE
  11. CALCIUM CARBONATE [Concomitant]
     Active Substance: CALCIUM CARBONATE
  12. SYMBICORT [Concomitant]
     Active Substance: BUDESONIDE\FORMOTEROL FUMARATE DIHYDRATE
  13. ATORVASTATIN [Concomitant]
     Active Substance: ATORVASTATIN
  14. ATROVENT [Concomitant]
     Active Substance: IPRATROPIUM BROMIDE
  15. ALBUTEROL [Concomitant]
     Active Substance: ALBUTEROL
  16. PREDNISOLONE [Concomitant]
     Active Substance: PREDNISOLONE

REACTIONS (3)
  - Spinal fracture [Not Recovered/Not Resolved]
  - Fall [Not Recovered/Not Resolved]
  - Injection site bruising [Unknown]

NARRATIVE: CASE EVENT DATE: 20250101
